FAERS Safety Report 6157962-4 (Version None)
Quarter: 2009Q2

REPORT INFORMATION
  Report Type: 
  Country: None (occurrence: None)
  Receive Date: 20090417
  Receipt Date: 20090407
  Transmission Date: 20091009
  Serious: Yes (Hospitalization, Other)
  Sender: FDA-Public Use
  Company Number: GB-JNJFOC-20090402179

PATIENT
  Age: 34 Year
  Sex: Female
  Weight: 79 kg

DRUGS (7)
  1. REMICADE [Suspect]
     Indication: PSORIATIC ARTHROPATHY
     Route: 042
  2. AMITRIPTYLINE HCL [Concomitant]
  3. METHOTREXATE [Concomitant]
  4. CELEBREX [Concomitant]
  5. ACETAMINOPHEN W/ CODEINE [Concomitant]
  6. FOLIC ACID [Concomitant]
  7. ORAMORPH SR [Concomitant]

REACTIONS (1)
  - HYSTERECTOMY [None]
